FAERS Safety Report 22802423 (Version 3)
Quarter: 2023Q4

REPORT INFORMATION
  Report Type: Spontaneous
  Country: JP (occurrence: JP)
  Receive Date: 20230809
  Receipt Date: 20231117
  Transmission Date: 20240110
  Serious: Yes (Death)
  Sender: FDA-Public Use
  Company Number: JP-GLAXOSMITHKLINE-JP2021JPN259004

PATIENT

DRUGS (13)
  1. DAPRODUSTAT [Suspect]
     Active Substance: DAPRODUSTAT
     Indication: Nephrogenic anaemia
     Dosage: 4 MG, 1D
     Route: 048
     Dates: start: 20210922, end: 20211017
  2. DAPRODUSTAT [Suspect]
     Active Substance: DAPRODUSTAT
     Dosage: 6 MG, 1D
     Dates: start: 20211018, end: 20211025
  3. ESPO [Concomitant]
     Indication: Nephrogenic anaemia
     Dosage: 3000 IU, 3W
     Route: 042
     Dates: start: 20210910, end: 20210921
  4. TELMISARTAN [Concomitant]
     Active Substance: TELMISARTAN
     Indication: Hypertension
     Dosage: 20 MG, 1D
     Route: 048
  5. AMLODIPINE BESYLATE [Concomitant]
     Active Substance: AMLODIPINE BESYLATE
     Indication: Hypertension
     Dosage: 2.5 MG, 1D
     Route: 048
  6. LINAGLIPTIN [Concomitant]
     Active Substance: LINAGLIPTIN
     Dosage: UNK
     Route: 048
  7. CALCITRIOL [Concomitant]
     Active Substance: CALCITRIOL
     Dosage: UNK
     Route: 048
  8. LANSOPRAZOLE [Concomitant]
     Active Substance: LANSOPRAZOLE
     Dosage: UNK
     Route: 048
  9. TICLOPIDINE HYDROCHLORIDE [Concomitant]
     Active Substance: TICLOPIDINE HYDROCHLORIDE
     Dosage: UNK
     Route: 048
  10. NALFURAFINE HYDROCHLORIDE [Concomitant]
     Active Substance: NALFURAFINE HYDROCHLORIDE
     Dosage: UNK
     Route: 048
  11. CETIRIZINE HYDROCHLORIDE [Concomitant]
     Active Substance: CETIRIZINE HYDROCHLORIDE
     Dosage: UNK
     Route: 048
  12. SODIUM PICOSULFATE [Concomitant]
     Active Substance: SODIUM PICOSULFATE
     Dosage: UNK
     Route: 048
  13. BONVIVA (IBANDRONATE SODIUM MONOHYDRATE) [Concomitant]
     Dosage: UNK
     Route: 042

REACTIONS (1)
  - Nausea [Fatal]

NARRATIVE: CASE EVENT DATE: 20210101
